FAERS Safety Report 5362709-5 (Version None)
Quarter: 2007Q2

REPORT INFORMATION
  Report Type: 
  Country: None (occurrence: None)
  Receive Date: 20070619
  Receipt Date: 20070607
  Transmission Date: 20071010
  Serious: Yes (Life-Threatening, Other)
  Sender: FDA-Public Use
  Company Number: JP-PFIZER INC-2007045614

PATIENT
  Age: 85 Year
  Sex: Male

DRUGS (2)
  1. ZYVOX [Suspect]
     Dosage: DAILY DOSE:1200MG
     Route: 042
  2. I.V. SOLUTIONS [Concomitant]
     Route: 042

REACTIONS (2)
  - BLOOD SODIUM DECREASED [None]
  - HAEMOGLOBIN DECREASED [None]
